FAERS Safety Report 17468879 (Version 1)
Quarter: 2020Q1

REPORT INFORMATION
  Report Type: Spontaneous
  Country: US (occurrence: US)
  Receive Date: 20200215
  Receipt Date: 20200215
  Transmission Date: 20200409
  Serious: Yes (Hospitalization)
  Sender: FDA-Public Use
  Company Number: None

PATIENT
  Age: 68 Year
  Sex: Male
  Weight: 60.9 kg

DRUGS (1)
  1. CARBOPLATIN. [Suspect]
     Active Substance: CARBOPLATIN
     Dates: end: 20200204

REACTIONS (5)
  - Asthenia [None]
  - Weight decreased [None]
  - Hypophagia [None]
  - Constipation [None]
  - Haemoglobin decreased [None]

NARRATIVE: CASE EVENT DATE: 20200210
